FAERS Safety Report 9690927 (Version 1)
Quarter: 2013Q4

REPORT INFORMATION
  Report Type: Spontaneous
  Country: US (occurrence: US)
  Receive Date: 20131115
  Receipt Date: 20131115
  Transmission Date: 20140711
  Serious: Yes (Other)
  Sender: FDA-Public Use
  Company Number: US-PFIZER INC-2013326239

PATIENT
  Age: 55 Year
  Sex: Female
  Weight: 80.73 kg

DRUGS (2)
  1. PRISTIQ [Suspect]
     Indication: DEPRESSION
     Dosage: 50 MG, 1X/DAY
     Route: 048
  2. PRISTIQ [Suspect]
     Dosage: UNK
     Route: 048

REACTIONS (2)
  - Drug dependence [Recovered/Resolved]
  - Malaise [Recovered/Resolved]
